FAERS Safety Report 4526557-8 (Version None)
Quarter: 2004Q4

REPORT INFORMATION
  Report Type: 
  Country: None (occurrence: None)
  Receive Date: 20041210
  Receipt Date: 20041122
  Transmission Date: 20050328
  Serious: Yes (Hospitalization)
  Sender: FDA-Public Use
  Company Number: 2004100127

PATIENT
  Age: 55 Year
  Sex: Female

DRUGS (7)
  1. BEXTRA [Suspect]
     Indication: ILL-DEFINED DISORDER
     Dosage: (20 MG), ORAL
     Route: 048
     Dates: start: 20041006
  2. ALLOPURINOL [Concomitant]
  3. ENALAPRIL (ENALAPRIL) [Concomitant]
  4. FUROSEMIDE [Concomitant]
  5. SALMETEROL (SALMETEROL) [Concomitant]
  6. BECLOMETASONE 9BECLAMETASONE0 [Concomitant]
  7. PROMAZINE HCL [Concomitant]

REACTIONS (2)
  - NEPHRITIS INTERSTITIAL [None]
  - RENAL FAILURE ACUTE [None]
